FAERS Safety Report 20567295 (Version 3)
Quarter: 2022Q2

REPORT INFORMATION
  Report Type: Spontaneous
  Country: US (occurrence: US)
  Receive Date: 20220308
  Receipt Date: 20220517
  Transmission Date: 20220721
  Serious: Yes (Other)
  Sender: FDA-Public Use
  Company Number: US-BAUSCH-BL-2022-005636

PATIENT
  Sex: Female

DRUGS (1)
  1. DIASTAT [Suspect]
     Active Substance: DIAZEPAM
     Indication: Product used for unknown indication
     Route: 054

REACTIONS (2)
  - Device malfunction [Unknown]
  - Product quality issue [Unknown]
